FAERS Safety Report 7329395-6 (Version None)
Quarter: 2011Q1

REPORT INFORMATION
  Report Type: 
  Country: None (occurrence: None)
  Receive Date: 20110303
  Receipt Date: 20110216
  Transmission Date: 20110831
  Serious: Yes (Disabling)
  Sender: FDA-Public Use
  Company Number: FR-BAUSCH-2011BL001017

PATIENT
  Age: 87 Year
  Sex: Male

DRUGS (4)
  1. DIAMOX SRC [Concomitant]
     Indication: GLAUCOMA
  2. PLAQUENIL [Suspect]
     Indication: CUTANEOUS LUPUS ERYTHEMATOSUS
  3. CARTEOL 2% COLLYRE [Suspect]
     Indication: GLAUCOMA
     Route: 047
     Dates: end: 20100101
  4. FRACTAL [Concomitant]
     Indication: HYPERCHOLESTEROLAEMIA

REACTIONS (3)
  - RETINOPATHY [None]
  - ORAL LICHEN PLANUS [None]
  - CUTANEOUS LUPUS ERYTHEMATOSUS [None]
